FAERS Safety Report 17294647 (Version 3)
Quarter: 2021Q1

REPORT INFORMATION
  Report Type: Spontaneous
  Country: US (occurrence: US)
  Receive Date: 20200121
  Receipt Date: 20210216
  Transmission Date: 20210419
  Serious: No
  Sender: FDA-Public Use
  Company Number: US-PFIZER INC-2020023284

PATIENT
  Age: 62 Year
  Sex: Female

DRUGS (1)
  1. ESTRING [Suspect]
     Active Substance: ESTRADIOL
     Dosage: UNK (EVERY 3 MONTHS)

REACTIONS (3)
  - Frustration tolerance decreased [Unknown]
  - Nervousness [Unknown]
  - Emotional disorder [Unknown]
